FAERS Safety Report 9085153 (Version 1)
Quarter: 2013Q1

REPORT INFORMATION
  Report Type: Report from Study
  Country: US (occurrence: US)
  Receive Date: 20130131
  Receipt Date: 20130131
  Transmission Date: 20140127
  Serious: No
  Sender: FDA-Public Use
  Company Number: US-ABBOTT-12P-163-1002753-00

PATIENT
  Age: 34 Year
  Sex: Female

DRUGS (9)
  1. HUMIRA [Suspect]
     Indication: CROHN^S DISEASE
     Dates: start: 201209
  2. VITAMIN B [Concomitant]
     Indication: VITAMIN B COMPLEX DEFICIENCY
     Dosage: MONTHLY
  3. VITAMIN D [Concomitant]
     Indication: VITAMIN B COMPLEX DEFICIENCY
  4. ZYRTEC [Concomitant]
     Indication: SEASONAL ALLERGY
  5. CELEXA [Concomitant]
     Indication: DEPRESSION
     Dosage: DAILY
  6. KLONOPIN [Concomitant]
     Indication: DEPRESSION
  7. KLONOPIN [Concomitant]
     Indication: ANXIETY
  8. TOPAMAX [Concomitant]
     Indication: MIGRAINE
  9. XANAX [Concomitant]
     Indication: PANIC ATTACK

REACTIONS (3)
  - Device malfunction [Not Recovered/Not Resolved]
  - Injection site haemorrhage [Not Recovered/Not Resolved]
  - Drug ineffective [Not Recovered/Not Resolved]
